FAERS Safety Report 8555110 (Version 3)
Quarter: 2012Q4

REPORT INFORMATION
  Report Type: 
  Country: CH (occurrence: CH)
  Receive Date: 20120510
  Receipt Date: 20120917
  Transmission Date: 20130627
  Serious: Yes (Hospitalization)
  Sender: FDA-Public Use
  Company Number: PHHY2012CH037915

PATIENT
  Age: 28 Year
  Sex: Female

DRUGS (8)
  1. MYFORTIC [Suspect]
     Indication: SYSTEMIC LUPUS ERYTHEMATOSUS
     Dosage: 720 mg, BID
     Dates: start: 201202
  2. MYFORTIC [Suspect]
     Dosage: 1/2 unspecified dose
  3. MYFORTIC [Suspect]
     Dosage: Full unspecified dose
  4. PREDNISONE [Concomitant]
     Dosage: 10 mg, QD
     Dates: start: 20120412, end: 20120429
  5. PREDNISONE [Concomitant]
     Dosage: 7.5 mg, QD
     Dates: start: 20120430
  6. CALCIMAGON-D3 [Concomitant]
  7. CITALOPRAM [Concomitant]
     Dosage: 20 mg, QD
  8. OLMESARTAN [Concomitant]
     Dosage: 20 mg, QD

REACTIONS (6)
  - Agranulocytosis [Recovered/Resolved]
  - Neutropenia [Recovering/Resolving]
  - White blood cell count decreased [Unknown]
  - Escherichia urinary tract infection [Recovering/Resolving]
  - Haematuria [Recovering/Resolving]
  - Pyrexia [Recovering/Resolving]
